FAERS Safety Report 6410749-7 (Version None)
Quarter: 2009Q4

REPORT INFORMATION
  Report Type: 
  Country: None (occurrence: None)
  Receive Date: 20091020
  Receipt Date: 20091020
  Transmission Date: 20100525
  Serious: Yes (Hospitalization)
  Sender: FDA-Public Use
  Company Number: None

PATIENT
  Age: 62 Year
  Sex: Male
  Weight: 91 kg

DRUGS (1)
  1. INNOHEP [Suspect]
     Indication: PULMONARY EMBOLISM
     Dosage: TINZAPARIN 175 MG/KG Q DAY SUBCUTANEOUS
     Route: 058
     Dates: start: 20090528, end: 20090604

REACTIONS (5)
  - HAEMATEMESIS [None]
  - HAEMATOCHEZIA [None]
  - HAEMATOCRIT DECREASED [None]
  - METASTASES TO SMALL INTESTINE [None]
  - SMALL INTESTINAL HAEMORRHAGE [None]
